FAERS Safety Report 8849563 (Version 1)
Quarter: 2012Q4

REPORT INFORMATION
  Report Type: Spontaneous
  Country: US (occurrence: None)
  Receive Date: 20121018
  Receipt Date: 20121018
  Transmission Date: 20130627
  Serious: Yes (Hospitalization)
  Sender: FDA-Public Use
  Company Number: None

PATIENT
  Age: 36 Year
  Sex: Male
  Weight: 95.26 kg

DRUGS (1)
  1. SULFAMETHOXAZOLE/TRIMETHOPRIM [Suspect]
     Indication: INFECTED INSECT BITE
     Dosage: 2 tablets Twice Daily po
     Route: 048
     Dates: start: 20121011, end: 20121012

REACTIONS (7)
  - Headache [None]
  - Pyrexia [None]
  - Muscle twitching [None]
  - Muscular weakness [None]
  - Photophobia [None]
  - Similar reaction on previous exposure to drug [None]
  - Urine analysis abnormal [None]
